FAERS Safety Report 23235465 (Version 1)
Quarter: 2023Q4

REPORT INFORMATION
  Report Type: Spontaneous
  Country: US (occurrence: None)
  Receive Date: 20231127
  Receipt Date: 20231127
  Transmission Date: 20240110
  Serious: Yes (Death)
  Sender: FDA-Public Use
  Company Number: None

PATIENT
  Age: 59 Year
  Sex: Female
  Weight: 91.7 kg

DRUGS (1)
  1. ROZLYTREK [Suspect]
     Active Substance: ENTRECTINIB
     Indication: Lung adenocarcinoma stage IV
     Dosage: 600 MG DAILY ORAL
     Route: 048
     Dates: start: 20231118, end: 20231122

REACTIONS (3)
  - Fall [None]
  - Unresponsive to stimuli [None]
  - Cardiac arrest [None]

NARRATIVE: CASE EVENT DATE: 20231122
